FAERS Safety Report 9596606 (Version 4)
Quarter: 2013Q4

REPORT INFORMATION
  Report Type: Spontaneous
  Country: US (occurrence: US)
  Receive Date: 20131004
  Receipt Date: 20131114
  Transmission Date: 20140711
  Serious: Yes (Hospitalization, Other)
  Sender: FDA-Public Use
  Company Number: US-AMGEN-USASP2013060453

PATIENT
  Age: 27 Year
  Sex: Male
  Weight: 67.12 kg

DRUGS (8)
  1. ENBREL [Suspect]
     Indication: JUVENILE IDIOPATHIC ARTHRITIS
     Dosage: 25 MG, 2 TIMES/WK
     Route: 058
     Dates: end: 201308
  2. AZITHROMYCIN [Suspect]
     Indication: CHILLS
     Dosage: UNK
     Route: 065
  3. CAMELLIA SINENSIS [Suspect]
     Indication: PRODUCT USED FOR UNKNOWN INDICATION
     Dosage: UNK
     Route: 065
     Dates: end: 201308
  4. RETIN A [Concomitant]
     Dosage: UNK
  5. ELIDEL [Concomitant]
     Dosage: UNK
  6. IBUPROFEN [Concomitant]
     Dosage: 200 MG, UNK
  7. ACETAMINOPHEN [Concomitant]
     Dosage: UNK
  8. NAPROSYN                           /00256201/ [Concomitant]
     Dosage: 400 MG, QD

REACTIONS (9)
  - Drug-induced liver injury [Unknown]
  - Hepatitis cholestatic [Recovered/Resolved]
  - Skin hypertrophy [Unknown]
  - Skin exfoliation [Unknown]
  - Paraesthesia [Unknown]
  - Viral infection [Unknown]
  - Hypoaesthesia [Unknown]
  - Incorrect product storage [Unknown]
  - Rheumatoid arthritis [Unknown]
